FAERS Safety Report 10522981 (Version 3)
Quarter: 2014Q4

REPORT INFORMATION
  Report Type: Spontaneous
  Country: JP (occurrence: JP)
  Receive Date: 20141016
  Receipt Date: 20141118
  Transmission Date: 20150528
  Serious: Yes (Other)
  Sender: FDA-Public Use
  Company Number: JP-GLAXOSMITHKLINE-A201411140

PATIENT
  Age: 37 Year
  Sex: Male
  Weight: 53 kg

DRUGS (4)
  1. BENZALIN [Concomitant]
     Active Substance: NITRAZEPAM
     Indication: EPILEPSY
     Dosage: UNK, U
     Dates: start: 201401
  2. SODIUM VALPROATE [Concomitant]
     Active Substance: VALPROATE SODIUM
     Indication: EPILEPSY
     Dosage: UNK, U
     Dates: start: 201401
  3. LAMOTRIGINE. [Suspect]
     Active Substance: LAMOTRIGINE
     Indication: EPILEPSY
  4. LAMOTRIGINE. [Suspect]
     Active Substance: LAMOTRIGINE
     Indication: LENNOX-GASTAUT SYNDROME
     Dosage: 25 MG, BID
     Route: 048
     Dates: start: 20140117, end: 20140925

REACTIONS (8)
  - Decreased appetite [Recovering/Resolving]
  - Choking [Recovered/Resolved]
  - Gastrooesophageal reflux disease [Recovered/Resolved]
  - Agitation [Recovered/Resolved]
  - Pyrexia [Recovered/Resolved]
  - Body temperature increased [Recovered/Resolved]
  - Insomnia [Recovered/Resolved]
  - Dysphagia [Recovering/Resolving]

NARRATIVE: CASE EVENT DATE: 20140407
